FAERS Safety Report 23976493 (Version 3)
Quarter: 2024Q2

REPORT INFORMATION
  Report Type: Spontaneous
  Country: US (occurrence: US)
  Receive Date: 20240614
  Receipt Date: 20240624
  Transmission Date: 20240716
  Serious: Yes (Other)
  Sender: FDA-Public Use
  Company Number: US-002147023-NVSC2024US125031

PATIENT
  Sex: Female

DRUGS (2)
  1. COSENTYX [Suspect]
     Active Substance: SECUKINUMAB
     Indication: Product used for unknown indication
     Dosage: 150 MG, QMO (X2) (ROUTE OF ADMINISTRATION: SENSOREADY PEN)
     Route: 065
  2. COSENTYX [Suspect]
     Active Substance: SECUKINUMAB
     Dosage: 150 MILLIGRAM PER MILLILITRE, Q2W
     Route: 065

REACTIONS (5)
  - Pneumonia [Unknown]
  - Arthralgia [Unknown]
  - Pain [Unknown]
  - Product temperature excursion issue [Unknown]
  - Product distribution issue [Unknown]
